FAERS Safety Report 5745613-X (Version None)
Quarter: 2008Q2

REPORT INFORMATION
  Report Type: 
  Country: None (occurrence: None)
  Receive Date: 20080519
  Receipt Date: 20080401
  Transmission Date: 20081010
  Serious: No
  Sender: FDA-Public Use
  Company Number: TPA2008A00434

PATIENT
  Age: 58 Year
  Sex: Female
  Weight: 54.8852 kg

DRUGS (5)
  1. ROZEREM [Suspect]
     Indication: ANXIETY
     Dosage: 8 MG, QHS, PER ORAL
     Route: 048
     Dates: start: 20080331
  2. ROZEREM [Suspect]
     Indication: SLEEP DISORDER
     Dosage: 8 MG, QHS, PER ORAL
     Route: 048
     Dates: start: 20080331
  3. MULTIVITAMIN [Concomitant]
  4. XANAX [Concomitant]
  5. CALCIUM (CALCIUM) [Concomitant]

REACTIONS (3)
  - FATIGUE [None]
  - INITIAL INSOMNIA [None]
  - MIDDLE INSOMNIA [None]
